FAERS Safety Report 23508246 (Version 1)
Quarter: 2024Q1

REPORT INFORMATION
  Report Type: Spontaneous
  Country: US (occurrence: US)
  Receive Date: 20240209
  Receipt Date: 20240209
  Transmission Date: 20240410
  Serious: Yes (Disabling, Other)
  Sender: FDA-Public Use
  Company Number: US-ABBVIE-5628860

PATIENT

DRUGS (4)
  1. ASACOL [Suspect]
     Active Substance: MESALAMINE
     Indication: Product used for unknown indication
     Route: 048
  2. FAMOTIDINE [Concomitant]
     Active Substance: FAMOTIDINE
     Indication: Product used for unknown indication
     Dosage: FORM STRENGTH: 40 MILLIGRAM
     Route: 065
     Dates: start: 202401
  3. XELJANZ [Suspect]
     Active Substance: TOFACITINIB CITRATE
     Indication: Colitis ulcerative
     Dosage: 5 MG TWICE A DAY
     Route: 065
     Dates: start: 2021
  4. PANTOPRAZOLE SODIUM [Concomitant]
     Active Substance: PANTOPRAZOLE SODIUM
     Indication: Product used for unknown indication
     Dosage: FORM STRENGTH: 40 MILLIGRAM
     Route: 065
     Dates: start: 2004

REACTIONS (10)
  - Disability [Unknown]
  - Insomnia [Unknown]
  - Fatigue [Unknown]
  - Blood pressure abnormal [Unknown]
  - Illness [Recovering/Resolving]
  - Eye pain [Not Recovered/Not Resolved]
  - Stress [Unknown]
  - Malaise [Recovered/Resolved]
  - Mood altered [Unknown]
  - Eye operation [Unknown]
